FAERS Safety Report 23558064 (Version 1)
Quarter: 2024Q1

REPORT INFORMATION
  Report Type: Spontaneous
  Country: ES (occurrence: ES)
  Receive Date: 20240223
  Receipt Date: 20240223
  Transmission Date: 20240410
  Serious: Yes (Other)
  Sender: FDA-Public Use
  Company Number: ES-JNJFOC-20240250932

PATIENT
  Age: 60 Year
  Sex: Female

DRUGS (3)
  1. SPRAVATO [Suspect]
     Active Substance: ESKETAMINE
     Indication: Product used for unknown indication
     Dosage: DOSE DAY 1
  2. SPRAVATO [Suspect]
     Active Substance: ESKETAMINE
     Dosage: DOSE DAY 2 TO FINAL DOSE
  3. SPRAVATO [Suspect]
     Active Substance: ESKETAMINE
     Dosage: MAINTENANCE DOSE

REACTIONS (1)
  - Neoplasm malignant [Unknown]
